FAERS Safety Report 17241151 (Version 1)
Quarter: 2020Q1

REPORT INFORMATION
  Report Type: Spontaneous
  Country: US (occurrence: US)
  Receive Date: 20200107
  Receipt Date: 20200107
  Transmission Date: 20200409
  Serious: Yes (Other)
  Sender: FDA-Public Use
  Company Number: US-ROCHE-2511518

PATIENT
  Sex: Female

DRUGS (5)
  1. XOLAIR [Suspect]
     Active Substance: OMALIZUMAB
     Indication: UPPER RESPIRATORY TRACT INFECTION
     Dosage: 150 MG/ML  SYRINGE
     Route: 058
     Dates: start: 20180717
  2. TRAZODONE [Concomitant]
     Active Substance: TRAZODONE HYDROCHLORIDE
     Route: 065
  3. PAROXETINE. [Concomitant]
     Active Substance: PAROXETINE
  4. AMITRIPTYLINE [Concomitant]
     Active Substance: AMITRIPTYLINE
     Route: 065
  5. SUMATRIPTAN. [Concomitant]
     Active Substance: SUMATRIPTAN
     Route: 065

REACTIONS (3)
  - Swelling face [Unknown]
  - Pain [Unknown]
  - Rash [Unknown]
